FAERS Safety Report 4469785-2 (Version None)
Quarter: 2004Q4

REPORT INFORMATION
  Report Type: 
  Country: None (occurrence: None)
  Receive Date: 20041008
  Receipt Date: 20040929
  Transmission Date: 20050328
  Serious: Yes (Hospitalization)
  Sender: FDA-Public Use
  Company Number: FR-ROCHE-381682

PATIENT
  Age: 69 Year
  Sex: Male

DRUGS (2)
  1. PEGASYS [Suspect]
     Indication: HEPATITIS C
     Dosage: FORMULATION REPORTED AS INJECTABLE SOLUTION.
     Route: 058
     Dates: start: 20040206, end: 20040813
  2. COPEGUS [Suspect]
     Indication: HEPATITIS C
     Route: 048
     Dates: start: 20040206, end: 20040813

REACTIONS (7)
  - DERMATITIS EXFOLIATIVE [None]
  - EOSINOPHILIA [None]
  - LYMPHADENOPATHY [None]
  - PRURITUS [None]
  - RASH MACULO-PAPULAR [None]
  - RASH PAPULAR [None]
  - THROMBOCYTOPENIA [None]
